FAERS Safety Report 5179965-9 (Version None)
Quarter: 2006Q4

REPORT INFORMATION
  Report Type: 
  Country: None (occurrence: None)
  Receive Date: 20061211
  Receipt Date: 20061201
  Transmission Date: 20070319
  Serious: No
  Sender: FDA-Public Use
  Company Number: E2090-00133-SPO-JP

PATIENT
  Age: 56 Year
  Sex: Female

DRUGS (6)
  1. ZONISAMIDE [Suspect]
     Indication: EPILEPSY
     Dosage: 200 MG, ORAL
     Route: 048
     Dates: start: 20061006, end: 20061108
  2. TEMODAL [Suspect]
     Indication: BRAIN NEOPLASM
     Dosage: 100 MG, UNK; ORAL
     Route: 048
     Dates: start: 20061017, end: 20061107
  3. FAMOTIDINE [Concomitant]
  4. ISOBIDE (ISOSORBIDE) [Concomitant]
  5. DECADRON [Concomitant]
  6. ZOFRAN [Concomitant]

REACTIONS (7)
  - BLISTER [None]
  - GAIT DISTURBANCE [None]
  - HAEMORRHAGE SUBCUTANEOUS [None]
  - HEADACHE [None]
  - PLATELET COUNT DECREASED [None]
  - STEVENS-JOHNSON SYNDROME [None]
  - WHITE BLOOD CELL COUNT DECREASED [None]
